FAERS Safety Report 8844115 (Version 2)
Quarter: 2012Q4

REPORT INFORMATION
  Report Type: 
  Country: RU (occurrence: RU)
  Receive Date: 20121016
  Receipt Date: 20121214
  Transmission Date: 20130627
  Serious: Yes (Life-Threatening)
  Sender: FDA-Public Use
  Company Number: RU-JNJFOC-20121008809

PATIENT
  Age: 66 Year
  Sex: Male

DRUGS (9)
  1. XARELTO [Suspect]
     Indication: THROMBOSIS PROPHYLAXIS
     Dosage: 30 mg :cumulative dose
     Route: 048
     Dates: start: 20120918, end: 20120925
  2. XARELTO [Suspect]
     Indication: HIP ARTHROPLASTY
     Dosage: 30 mg :cumulative dose
     Route: 048
     Dates: start: 20120918, end: 20120925
  3. TRAMADOL [Concomitant]
     Indication: ANAESTHESIA
     Route: 048
     Dates: start: 20120918, end: 20120925
  4. KETOPROFEN [Concomitant]
     Indication: ANAESTHESIA
     Route: 030
     Dates: start: 20120918, end: 20120925
  5. DIPHENHYDRAMINE [Concomitant]
     Indication: PREMEDICATION
     Route: 030
     Dates: start: 20120917, end: 20120918
  6. METOCLOPRAMIDE [Concomitant]
     Indication: PRODUCT USED FOR UNKNOWN INDICATION
     Route: 065
     Dates: start: 20120917
  7. DIAZEPAM [Concomitant]
     Indication: PREMEDICATION
     Route: 065
     Dates: start: 20120917, end: 20120918
  8. PHENAZEPAM [Concomitant]
     Indication: PREMEDICATION
     Route: 048
     Dates: start: 20120917, end: 20120918
  9. CEFAZOLIN [Concomitant]
     Indication: PRODUCT USED FOR UNKNOWN INDICATION
     Route: 042
     Dates: start: 20120917, end: 20120918

REACTIONS (3)
  - Deep vein thrombosis [Not Recovered/Not Resolved]
  - Thrombophlebitis superficial [Not Recovered/Not Resolved]
  - Drug ineffective [Unknown]
